FAERS Safety Report 8962363 (Version 1)
Quarter: 2012Q4

REPORT INFORMATION
  Report Type: Spontaneous
  Country: US (occurrence: None)
  Receive Date: 20121211
  Receipt Date: 20121211
  Transmission Date: 20130627
  Serious: Yes (Life-Threatening)
  Sender: FDA-Public Use
  Company Number: None

PATIENT
  Sex: Female
  Weight: 62.3 kg

DRUGS (3)
  1. CEFTRIAXONE [Suspect]
     Indication: BRONCHITIS
     Dosage: 1 gram  1x  IM
     Route: 030
     Dates: start: 20121112
  2. CEFTRIAXONE [Suspect]
     Indication: PHARYNGITIS
     Dosage: 1 gram  1x  IM
     Route: 030
     Dates: start: 20121112
  3. LIDOCAINE HCL [Suspect]
     Dosage: 2.1 ml  1x  IM
     Route: 030

REACTIONS (9)
  - Respiratory failure [None]
  - Skin discolouration [None]
  - Altered state of consciousness [None]
  - Cardiac arrest [None]
  - Heart rate increased [None]
  - Drug hypersensitivity [None]
  - Respiratory arrest [None]
  - Aggression [None]
  - No reaction on previous exposure to drug [None]
